FAERS Safety Report 5032323-X (Version None)
Quarter: 2006Q2

REPORT INFORMATION
  Report Type: 
  Country: None (occurrence: None)
  Receive Date: 20060620
  Receipt Date: 20060620
  Transmission Date: 20061013
  Serious: Yes (Other)
  Sender: FDA-Public Use
  Company Number: None

PATIENT
  Age: 62 Year
  Sex: Female
  Weight: 57 kg

DRUGS (1)
  1. NEULASTA [Suspect]
     Indication: NEUTROPENIA
     Dosage: 6 MG X 1 AFTER CHEMO IV
     Route: 042
     Dates: start: 20060522, end: 20060522

REACTIONS (11)
  - BACTERIAL INFECTION [None]
  - DIARRHOEA [None]
  - ENTEROBACTER INFECTION [None]
  - LEUKAEMOID REACTION [None]
  - PNEUMONIA [None]
  - PRODUCTIVE COUGH [None]
  - PYREXIA [None]
  - RESPIRATORY FAILURE [None]
  - SPLENIC RUPTURE [None]
  - SPUTUM CULTURE POSITIVE [None]
  - STAPHYLOCOCCAL INFECTION [None]
